FAERS Safety Report 9947763 (Version 2)
Quarter: 2014Q1

REPORT INFORMATION
  Report Type: Report from Study
  Country: PR (occurrence: PR)
  Receive Date: 20140303
  Receipt Date: 20140303
  Transmission Date: 20141002
  Serious: Yes (Hospitalization)
  Sender: FDA-Public Use
  Company Number: PR-ABBVIE-12P-131-0898497-00

PATIENT
  Age: 58 Year
  Sex: Female
  Weight: 94.89 kg

DRUGS (14)
  1. HUMIRA 40 MG/0.8 ML PEN [Suspect]
     Indication: RHEUMATOID ARTHRITIS
     Route: 058
     Dates: start: 20111110, end: 20120119
  2. TOPROL [Concomitant]
     Indication: HYPERTENSION
     Dosage: 200 MG DAILY
     Route: 048
  3. HYZAAR [Concomitant]
     Indication: HYPERTENSION
     Dosage: 100/25 DAILY
     Route: 048
  4. NEBOXIN [Concomitant]
     Indication: GASTRIC DISORDER
     Route: 048
  5. LETAL [Concomitant]
     Indication: CARDIOVASCULAR DISORDER
     Route: 048
  6. FOLIC ACID [Concomitant]
     Indication: VITAMIN SUPPLEMENTATION
     Route: 048
  7. VITAMIN C [Concomitant]
     Indication: VITAMIN SUPPLEMENTATION
     Route: 048
  8. CALTRATE + D [Concomitant]
     Indication: OSTEOPOROSIS
     Route: 048
  9. PRILOSEC [Concomitant]
     Indication: GASTRIC DISORDER
     Route: 048
  10. ALLOPURINOL [Concomitant]
     Indication: RHEUMATOID ARTHRITIS
     Route: 048
  11. METROPOL [Concomitant]
     Indication: ANTIINFLAMMATORY THERAPY
     Route: 048
  12. NEURONTIN [Concomitant]
     Indication: DIABETES MELLITUS
     Route: 048
  13. METHOTREXATE [Concomitant]
     Indication: RHEUMATOID ARTHRITIS
     Route: 048
  14. MOBIC [Concomitant]
     Indication: ANTIINFLAMMATORY THERAPY
     Route: 048

REACTIONS (2)
  - Skin cancer [Recovered/Resolved]
  - Drug ineffective [Not Recovered/Not Resolved]
